FAERS Safety Report 10915860 (Version 1)
Quarter: 2015Q1

REPORT INFORMATION
  Report Type: Spontaneous
  Country: FR (occurrence: FR)
  Receive Date: 20150316
  Receipt Date: 20150316
  Transmission Date: 20150721
  Serious: Yes (Hospitalization)
  Sender: FDA-Public Use
  Company Number: FR-SA-2015SA029029

PATIENT
  Age: 82 Year
  Sex: Female

DRUGS (13)
  1. LASILIX FAIBLE [Suspect]
     Active Substance: FUROSEMIDE
     Route: 048
     Dates: start: 201409, end: 20141024
  2. FORADIL [Concomitant]
     Active Substance: FORMOTEROL FUMARATE
     Dosage: X2/ DAY
  3. BISOCE [Concomitant]
     Active Substance: BISOPROLOL
  4. OMEPRAZOLE. [Concomitant]
     Active Substance: OMEPRAZOLE
  5. TAHOR [Concomitant]
     Active Substance: ATORVASTATIN CALCIUM
  6. LEVETIRACETAM. [Concomitant]
     Active Substance: LEVETIRACETAM
  7. MIFLONIL [Concomitant]
     Active Substance: BUDESONIDE
     Dosage: 1 DOSE IN MORNING AND 1 DOSE IN EVENING
  8. NOVONORM [Concomitant]
     Active Substance: REPAGLINIDE
     Dosage: X3/ DAY
  9. COVERSYL [Concomitant]
     Active Substance: PERINDOPRIL
  10. LASILIX [Concomitant]
     Active Substance: FUROSEMIDE
  11. KARDEGIC [Concomitant]
     Active Substance: ASPIRIN LYSINE
  12. COUMADIN [Concomitant]
     Active Substance: WARFARIN SODIUM
  13. DOLIPRANE [Concomitant]
     Active Substance: ACETAMINOPHEN
     Indication: PAIN

REACTIONS (2)
  - Drug prescribing error [Unknown]
  - Cardiac failure [Recovered/Resolved]

NARRATIVE: CASE EVENT DATE: 201409
